FAERS Safety Report 20798501 (Version 2)
Quarter: 2022Q2

REPORT INFORMATION
  Report Type: Spontaneous
  Country: DK (occurrence: DK)
  Receive Date: 20220507
  Receipt Date: 20220510
  Transmission Date: 20220720
  Serious: Yes (Hospitalization, Other)
  Sender: FDA-Public Use
  Company Number: DK-EMA-DD-20200116-zaviour_n-133343

PATIENT
  Age: 69 Year
  Sex: Female

DRUGS (25)
  1. TETRACAINE HYDROCHLORIDE [Suspect]
     Active Substance: TETRACAINE HYDROCHLORIDE
     Dosage: UNK
     Route: 061
  2. HYDROCORTISONE BUTYRATE [Suspect]
     Active Substance: HYDROCORTISONE BUTYRATE
     Indication: Skin test
     Dosage: STRENGTH: 1%, STRENGTH: 0.1%
     Route: 061
  3. HYDROCORTISONE BUTYRATE [Suspect]
     Active Substance: HYDROCORTISONE BUTYRATE
     Indication: Haemorrhoids
     Dosage: OINTMENT
  4. BETAMETHASONE VALERATE [Suspect]
     Active Substance: BETAMETHASONE VALERATE
     Indication: Skin test
     Dosage: STRENGTH: 1%
     Route: 061
  5. BETAMETHASONE VALERATE [Suspect]
     Active Substance: BETAMETHASONE VALERATE
     Dosage: STRENGTH: 0.12%
     Route: 061
  6. PHENYLEPHRINE HYDROCHLORIDE [Suspect]
     Active Substance: PHENYLEPHRINE HYDROCHLORIDE
  7. CLOBETASOL PROPIONATE [Suspect]
     Active Substance: CLOBETASOL PROPIONATE
     Indication: Skin test
     Dosage: STRENGTH: 0.25%
     Route: 061
  8. CLOBETASOL PROPIONATE [Suspect]
     Active Substance: CLOBETASOL PROPIONATE
     Dosage: STRENGTH: 1%
     Route: 065
  9. TRIAMCINOLONE ACETONIDE [Suspect]
     Active Substance: TRIAMCINOLONE ACETONIDE
     Indication: Skin test
     Dosage: STRENGTH: 1%
     Route: 061
  10. TRIAMCINOLONE ACETONIDE [Suspect]
     Active Substance: TRIAMCINOLONE ACETONIDE
     Dosage: STRENGTH: 0.1%
     Route: 061
  11. MOMETASONE FUROATE [Suspect]
     Active Substance: MOMETASONE FUROATE
     Indication: Eczema
     Route: 061
  12. BENZOCAINE [Suspect]
     Active Substance: BENZOCAINE
     Indication: Skin test
     Route: 061
  13. BUDESONIDE [Suspect]
     Active Substance: BUDESONIDE
     Indication: Skin test
     Dosage: STRENGTH: 0.1%
     Route: 061
  14. SYNALAR [Suspect]
     Active Substance: FLUOCINOLONE ACETONIDE
     Indication: Eczema
     Route: 065
  15. SYNALAR [Suspect]
     Active Substance: FLUOCINOLONE ACETONIDE
     Indication: Haemorrhoids
  16. DESOXIMETASONE [Suspect]
     Active Substance: DESOXIMETASONE
     Indication: Skin test
     Dosage: STRENGTH: 1%
     Route: 061
  17. PHENYLEPHRINE HYDROCHLORIDE [Suspect]
     Active Substance: PHENYLEPHRINE HYDROCHLORIDE
     Route: 065
  18. TIXOCORTOL PIVALATE [Suspect]
     Active Substance: TIXOCORTOL PIVALATE
     Indication: Skin test
     Route: 061
  19. METHYLCHLOROISOTHIAZOLINONE [Suspect]
     Active Substance: METHYLCHLOROISOTHIAZOLINONE
  20. DIBUCAINE HYDROCHLORIDE [Suspect]
     Active Substance: DIBUCAINE HYDROCHLORIDE
     Indication: Skin test
     Dosage: STRENGTH: 5%
     Route: 061
  21. DIBUCAINE HYDROCHLORIDE [Suspect]
     Active Substance: DIBUCAINE HYDROCHLORIDE
     Indication: Haemorrhoids
  22. DEXAMETHASONE SODIUM PHOSPHATE [Suspect]
     Active Substance: DEXAMETHASONE SODIUM PHOSPHATE
     Indication: Skin test
     Dosage: STRENGTH: 1%
     Route: 061
  23. ALCLOMETASONE DIPROPIONATE [Suspect]
     Active Substance: ALCLOMETASONE DIPROPIONATE
     Indication: Skin test
     Dosage: STRENGTH: 1%
     Route: 061
  24. AMCINONIDE [Suspect]
     Active Substance: AMCINONIDE
     Indication: Skin test
     Dosage: STRENGTH: 0.1%
     Route: 061
  25. DIBUCAINE [Suspect]
     Active Substance: DIBUCAINE
     Indication: Haemorrhoids
     Route: 065

REACTIONS (10)
  - Erythema [Unknown]
  - Drug ineffective [Unknown]
  - Oedema [Unknown]
  - Drug hypersensitivity [Unknown]
  - Dermatitis allergic [Not Recovered/Not Resolved]
  - Pruritus [Unknown]
  - Eczema [Recovered/Resolved]
  - Eczema [Unknown]
  - Dermatitis [Unknown]
  - Rash [Unknown]
